FAERS Safety Report 6543758-8 (Version None)
Quarter: 2010Q1

REPORT INFORMATION
  Report Type: 
  Country: None (occurrence: None)
  Receive Date: 20100120
  Receipt Date: 20100113
  Transmission Date: 20100710
  Serious: Yes (Other)
  Sender: FDA-Public Use
  Company Number: US-ABBOTT-10P-163-0619203-00

PATIENT
  Age: 18 Year

DRUGS (2)
  1. DIVALPROEX SODIUM [Suspect]
     Indication: EPILEPSY
     Route: 065
  2. LEVETIRACETAM [Suspect]
     Indication: EPILEPSY
     Route: 065

REACTIONS (2)
  - CONVULSION [None]
  - IRON OVERLOAD [None]
